FAERS Safety Report 4864182-X (Version None)
Quarter: 2005Q4

REPORT INFORMATION
  Report Type: 
  Country: None (occurrence: None)
  Receive Date: 20051219
  Receipt Date: 20051207
  Transmission Date: 20060501
  Serious: Yes (Death, Other)
  Sender: FDA-Public Use
  Company Number: 2005166307

PATIENT
  Age: 35 Year
  Sex: Male

DRUGS (2)
  1. ZIPRASIDONE HCL [Suspect]
     Indication: SCHIZOPHRENIA
     Dosage: 120 MG (60 MG, 2 IN 1 D), ORAL
     Route: 048
     Dates: start: 20050901, end: 20050101
  2. DIAZEPAM [Concomitant]

REACTIONS (6)
  - COMPLETED SUICIDE [None]
  - CONDITION AGGRAVATED [None]
  - INSOMNIA [None]
  - PSYCHOTIC DISORDER [None]
  - RESTLESSNESS [None]
  - SCHIZOPHRENIA [None]
